FAERS Safety Report 9452210 (Version 1)
Quarter: 2013Q3

REPORT INFORMATION
  Report Type: Spontaneous
  Country: JP (occurrence: JP)
  Receive Date: 20130812
  Receipt Date: 20130812
  Transmission Date: 20140515
  Serious: Yes (Hospitalization)
  Sender: FDA-Public Use
  Company Number: JP-009507513-1308JPN003070

PATIENT
  Sex: Male

DRUGS (3)
  1. GLACTIV [Suspect]
     Indication: TYPE 2 DIABETES MELLITUS
     Dosage: 50 MG, QD
     Route: 048
     Dates: start: 201109
  2. VOGLIBOSE [Concomitant]
  3. AMARYL [Concomitant]

REACTIONS (1)
  - Hypoglycaemia [Recovered/Resolved]
